FAERS Safety Report 19797742 (Version 1)
Quarter: 2021Q3

REPORT INFORMATION
  Report Type: Spontaneous
  Country: US (occurrence: US)
  Receive Date: 20210907
  Receipt Date: 20210907
  Transmission Date: 20211014
  Serious: No
  Sender: FDA-Public Use
  Company Number: US-PFIZER INC-2021272388

PATIENT
  Age: 38 Year
  Sex: Female
  Weight: 57.6 kg

DRUGS (1)
  1. DOCETAXEL. [Suspect]
     Active Substance: DOCETAXEL
     Dosage: UNK
     Dates: start: 20190718, end: 20190719

REACTIONS (2)
  - Fatigue [Unknown]
  - Nausea [Unknown]
